FAERS Safety Report 4956186-3 (Version None)
Quarter: 2006Q1

REPORT INFORMATION
  Report Type: 
  Country: None (occurrence: None)
  Receive Date: 20060322
  Receipt Date: 20060314
  Transmission Date: 20060701
  Serious: Yes (Disabling)
  Sender: FDA-Public Use
  Company Number: 2006035964

PATIENT
  Age: 65 Year
  Sex: Female
  Weight: 83.9154 kg

DRUGS (4)
  1. LIPITOR [Suspect]
     Indication: BLOOD CHOLESTEROL
     Dates: start: 19970101, end: 19980101
  2. LIPITOR [Suspect]
     Indication: HIGH DENSITY LIPOPROTEIN
     Dates: start: 19970101, end: 19980101
  3. LIPITOR [Suspect]
     Indication: LOW DENSITY LIPOPROTEIN
     Dates: start: 19970101, end: 19980101
  4. SYNTHROID [Concomitant]

REACTIONS (3)
  - MOVEMENT DISORDER [None]
  - MUSCLE INJURY [None]
  - MUSCULAR WEAKNESS [None]
